FAERS Safety Report 12333941 (Version 1)
Quarter: 2016Q2

REPORT INFORMATION
  Report Type: Spontaneous
  Country: US (occurrence: US)
  Receive Date: 20160504
  Receipt Date: 20160504
  Transmission Date: 20160815
  Serious: Yes (Other)
  Sender: FDA-Public Use
  Company Number: US-BAXTER-2016BAX021444

PATIENT
  Sex: Female

DRUGS (1)
  1. IFOSFAMIDE FOR INJECTION [Suspect]
     Active Substance: IFOSFAMIDE
     Indication: PRODUCT USED FOR UNKNOWN INDICATION
     Route: 065

REACTIONS (2)
  - Neuropathy peripheral [Unknown]
  - Drug hypersensitivity [Unknown]
